FAERS Safety Report 21166574 (Version 1)
Quarter: 2022Q3

REPORT INFORMATION
  Report Type: Spontaneous
  Country: US (occurrence: US)
  Receive Date: 20220803
  Receipt Date: 20220803
  Transmission Date: 20221026
  Serious: No
  Sender: FDA-Public Use
  Company Number: US-GLAXOSMITHKLINE-USCH2022026957

PATIENT

DRUGS (1)
  1. GLYCERIN\SORBITOL [Suspect]
     Active Substance: GLYCERIN\SORBITOL
     Indication: Product used for unknown indication
     Dosage: UNK

REACTIONS (3)
  - Dysgeusia [Unknown]
  - Drug effect less than expected [Unknown]
  - Product complaint [Unknown]
